FAERS Safety Report 14825590 (Version 1)
Quarter: 2018Q2

REPORT INFORMATION
  Report Type: Spontaneous
  Country: GB (occurrence: GB)
  Receive Date: 20180430
  Receipt Date: 20180430
  Transmission Date: 20180711
  Serious: Yes (Hospitalization, Other)
  Sender: FDA-Public Use
  Company Number: GB-TEVA-2018-GB-887255

PATIENT
  Age: 11 Month
  Sex: Female

DRUGS (7)
  1. TEICOPLANIN [Concomitant]
     Active Substance: TEICOPLANIN
     Route: 065
  2. LISINOPRIL. [Concomitant]
     Active Substance: LISINOPRIL
     Route: 065
  3. FUROSEMIDE. [Concomitant]
     Active Substance: FUROSEMIDE
     Route: 065
  4. ACETYLSALICYLIC ACID [Concomitant]
     Active Substance: ASPIRIN
     Route: 065
  5. VANCOMYCIN [Suspect]
     Active Substance: VANCOMYCIN
     Dosage: 15 MILLIGRAM DAILY;  LINE LOCK
     Route: 042
     Dates: start: 20180103, end: 20180104
  6. RANITIDINE. [Concomitant]
     Active Substance: RANITIDINE
     Route: 065
  7. DIGOXIN. [Concomitant]
     Active Substance: DIGOXIN
     Route: 065

REACTIONS (2)
  - Skin discolouration [Recovered/Resolved]
  - Oxygen saturation decreased [Recovered/Resolved]

NARRATIVE: CASE EVENT DATE: 20180104
